FAERS Safety Report 22142597 (Version 1)
Quarter: 2023Q1

REPORT INFORMATION
  Report Type: Spontaneous
  Country: JP (occurrence: JP)
  Receive Date: 20230327
  Receipt Date: 20230327
  Transmission Date: 20230417
  Serious: Yes (Life-Threatening, Hospitalization, Other)
  Sender: FDA-Public Use
  Company Number: JP-MSD-M2023-06417

PATIENT
  Age: 65 Year
  Sex: Female

DRUGS (8)
  1. KEYTRUDA [Suspect]
     Active Substance: PEMBROLIZUMAB
     Indication: Triple negative breast cancer
     Dosage: 200 MILLIGRAM, Q3W
     Route: 041
     Dates: start: 20221128
  2. KEYTRUDA [Suspect]
     Active Substance: PEMBROLIZUMAB
     Dosage: 200 MILLIGRAM, Q3W
     Route: 041
     Dates: start: 202301, end: 20230222
  3. PACLITAXEL [Suspect]
     Active Substance: PACLITAXEL
     Indication: Triple negative breast cancer
     Dosage: 80 MILLIGRAM, QW
     Route: 041
     Dates: start: 20221128, end: 202301
  4. PACLITAXEL [Suspect]
     Active Substance: PACLITAXEL
     Dosage: UNK
     Route: 041
     Dates: start: 202301, end: 2023
  5. PACLITAXEL [Suspect]
     Active Substance: PACLITAXEL
     Dosage: UNK
     Route: 041
     Dates: start: 202302
  6. CARBOPLATIN [Suspect]
     Active Substance: CARBOPLATIN
     Indication: Triple negative breast cancer
     Dosage: AUC1.5, QW
     Route: 041
     Dates: start: 20221128, end: 202301
  7. CARBOPLATIN [Suspect]
     Active Substance: CARBOPLATIN
     Dosage: UNK
     Route: 041
     Dates: start: 202301, end: 2023
  8. CARBOPLATIN [Suspect]
     Active Substance: CARBOPLATIN
     Dosage: UNK
     Route: 041
     Dates: start: 202302

REACTIONS (10)
  - Diabetes mellitus [Unknown]
  - Disseminated intravascular coagulation [Unknown]
  - Immune-mediated enterocolitis [Recovered/Resolved]
  - Hepatic function abnormal [Not Recovered/Not Resolved]
  - Renal impairment [Not Recovered/Not Resolved]
  - Platelet count decreased [Unknown]
  - White blood cell count decreased [Recovered/Resolved]
  - Malaise [Not Recovered/Not Resolved]
  - Constipation [Unknown]
  - Eastern Cooperative Oncology Group performance status worsened [Unknown]

NARRATIVE: CASE EVENT DATE: 20230110
